FAERS Safety Report 4742691-1 (Version None)
Quarter: 2005Q3

REPORT INFORMATION
  Report Type: 
  Country: None (occurrence: None)
  Receive Date: 20050811
  Receipt Date: 20050801
  Transmission Date: 20060218
  Serious: Yes (Disabling)
  Sender: FDA-Public Use
  Company Number: GB-JNJFOC-20050204919

PATIENT
  Sex: Female
  Weight: 67.7 kg

DRUGS (1)
  1. MICRONOR [Suspect]
     Indication: CONTRACEPTION
     Route: 048

REACTIONS (5)
  - HEADACHE [None]
  - MACULAR OEDEMA [None]
  - PALPITATIONS [None]
  - RETINOPATHY [None]
  - VISION BLURRED [None]
